FAERS Safety Report 21597796 (Version 14)
Quarter: 2023Q1

REPORT INFORMATION
  Report Type: Report from Study
  Country: IE (occurrence: IE)
  Receive Date: 20221115
  Receipt Date: 20230321
  Transmission Date: 20230418
  Serious: Yes (Other)
  Sender: FDA-Public Use
  Company Number: IE-BEH-2022148316

PATIENT
  Age: 59 Year
  Sex: Male
  Weight: 76 kg

DRUGS (26)
  1. ZEMAIRA [Suspect]
     Active Substance: .ALPHA.1-PROTEINASE INHIBITOR HUMAN
     Indication: Alpha-1 antitrypsin deficiency
     Dosage: 9120 MILLIGRAM
     Route: 042
  2. ZEMAIRA [Suspect]
     Active Substance: .ALPHA.1-PROTEINASE INHIBITOR HUMAN
     Dosage: 9120 MILLIGRAM
     Route: 042
  3. ZEMAIRA [Suspect]
     Active Substance: .ALPHA.1-PROTEINASE INHIBITOR HUMAN
     Dosage: 9120 MILLIGRAM
     Route: 042
     Dates: start: 20220801, end: 20220801
  4. ZEMAIRA [Suspect]
     Active Substance: .ALPHA.1-PROTEINASE INHIBITOR HUMAN
     Dosage: 9120 MILLIGRAM
     Route: 042
     Dates: start: 20220808, end: 20220808
  5. ZEMAIRA [Suspect]
     Active Substance: .ALPHA.1-PROTEINASE INHIBITOR HUMAN
     Dosage: 9120 MILLIGRAM
     Route: 042
     Dates: start: 20220822, end: 20220822
  6. ZEMAIRA [Suspect]
     Active Substance: .ALPHA.1-PROTEINASE INHIBITOR HUMAN
     Dosage: 9120 MILLIGRAM
     Route: 042
     Dates: start: 20220905, end: 20220905
  7. ZEMAIRA [Suspect]
     Active Substance: .ALPHA.1-PROTEINASE INHIBITOR HUMAN
     Dosage: 9120 MILLIGRAM
     Route: 042
     Dates: start: 20220919, end: 20220919
  8. ZEMAIRA [Suspect]
     Active Substance: .ALPHA.1-PROTEINASE INHIBITOR HUMAN
     Dosage: 9120 MILLIGRAM
     Route: 042
     Dates: start: 20220926, end: 20220926
  9. ZEMAIRA [Suspect]
     Active Substance: .ALPHA.1-PROTEINASE INHIBITOR HUMAN
     Dosage: 9120 MILLIGRAM
     Route: 042
     Dates: start: 20221003, end: 20221003
  10. ZEMAIRA [Suspect]
     Active Substance: .ALPHA.1-PROTEINASE INHIBITOR HUMAN
     Dosage: 9600 MILLIGRAM
     Route: 042
     Dates: start: 20221012, end: 20221012
  11. ZEMAIRA [Suspect]
     Active Substance: .ALPHA.1-PROTEINASE INHIBITOR HUMAN
     Dosage: 9120 MILLIGRAM, QW
     Route: 042
     Dates: start: 20221017
  12. ZEMAIRA [Suspect]
     Active Substance: .ALPHA.1-PROTEINASE INHIBITOR HUMAN
     Dosage: 9120 MILLIGRAM, QW
     Route: 042
     Dates: start: 20221025
  13. ZEMAIRA [Suspect]
     Active Substance: .ALPHA.1-PROTEINASE INHIBITOR HUMAN
     Dosage: 9120 MILLIGRAM, QW
     Route: 065
     Dates: start: 20221031
  14. ZEMAIRA [Suspect]
     Active Substance: .ALPHA.1-PROTEINASE INHIBITOR HUMAN
     Dosage: 9120 MILLIGRAM
     Route: 042
  15. ZEMAIRA [Suspect]
     Active Substance: .ALPHA.1-PROTEINASE INHIBITOR HUMAN
     Dosage: 9600 MILLIGRAM
     Route: 042
  16. ZEMAIRA [Suspect]
     Active Substance: .ALPHA.1-PROTEINASE INHIBITOR HUMAN
     Dosage: 9120 MILLIGRAM
     Route: 042
     Dates: start: 20221121
  17. ZEMAIRA [Suspect]
     Active Substance: .ALPHA.1-PROTEINASE INHIBITOR HUMAN
     Dosage: 9120 MILLIGRAM
     Route: 042
     Dates: start: 20221128, end: 20221128
  18. ZEMAIRA [Suspect]
     Active Substance: .ALPHA.1-PROTEINASE INHIBITOR HUMAN
     Dosage: 9120 MILLIGRAM
     Route: 042
     Dates: start: 20221205
  19. ZEMAIRA [Suspect]
     Active Substance: .ALPHA.1-PROTEINASE INHIBITOR HUMAN
     Dosage: 9120 MILLIGRAM / 182.4 ML
     Route: 042
     Dates: start: 20221212
  20. ZEMAIRA [Suspect]
     Active Substance: .ALPHA.1-PROTEINASE INHIBITOR HUMAN
     Dosage: 9120 MILLIGRAM
     Route: 042
     Dates: start: 20221226
  21. ZEMAIRA [Suspect]
     Active Substance: .ALPHA.1-PROTEINASE INHIBITOR HUMAN
     Dosage: 9120 MILLIGRAM
     Route: 042
     Dates: start: 20230109
  22. ZEMAIRA [Suspect]
     Active Substance: .ALPHA.1-PROTEINASE INHIBITOR HUMAN
     Dosage: 9120 MILLIGRAM
     Route: 042
     Dates: start: 20230123
  23. ZEMAIRA [Suspect]
     Active Substance: .ALPHA.1-PROTEINASE INHIBITOR HUMAN
     Dosage: 9120 MILLIGRAM / 182.4 ML
     Route: 042
     Dates: start: 20230130
  24. ZEMAIRA [Suspect]
     Active Substance: .ALPHA.1-PROTEINASE INHIBITOR HUMAN
     Dosage: 9120 MILLIGRAM
     Route: 042
     Dates: start: 20230206
  25. ZEMAIRA [Suspect]
     Active Substance: .ALPHA.1-PROTEINASE INHIBITOR HUMAN
     Dosage: 9120 MILLIGRAM
     Route: 042
     Dates: start: 20230213
  26. ZEMAIRA [Suspect]
     Active Substance: .ALPHA.1-PROTEINASE INHIBITOR HUMAN
     Dosage: 9120 MILLIGRAM
     Route: 042
     Dates: start: 20230220

REACTIONS (53)
  - No adverse event [Recovered/Resolved]
  - Prescribed overdose [Recovered/Resolved]
  - No adverse event [Recovered/Resolved]
  - Prescribed overdose [Recovered/Resolved]
  - No adverse event [Recovered/Resolved]
  - Prescribed overdose [Recovered/Resolved]
  - No adverse event [Recovered/Resolved]
  - Prescribed overdose [Recovered/Resolved]
  - No adverse event [Recovered/Resolved]
  - Prescribed overdose [Recovered/Resolved]
  - No adverse event [Recovered/Resolved]
  - Prescribed overdose [Recovered/Resolved]
  - No adverse event [Recovered/Resolved]
  - Prescribed overdose [Recovered/Resolved]
  - No adverse event [Recovered/Resolved]
  - Prescribed overdose [Recovered/Resolved]
  - No adverse event [Recovered/Resolved]
  - Prescribed overdose [Recovered/Resolved]
  - No adverse event [Recovered/Resolved]
  - Prescribed overdose [Recovered/Resolved]
  - No adverse event [Recovered/Resolved]
  - Prescribed overdose [Recovered/Resolved]
  - Generalised oedema [Recovered/Resolved]
  - Back pain [Recovered/Resolved]
  - Headache [Recovered/Resolved]
  - Fatigue [Recovered/Resolved]
  - Body temperature increased [Recovered/Resolved]
  - No adverse event [Recovered/Resolved]
  - Prescribed overdose [Recovered/Resolved]
  - No adverse event [Recovered/Resolved]
  - Prescribed overdose [Recovered/Resolved]
  - No adverse event [Recovered/Resolved]
  - Prescribed overdose [Recovered/Resolved]
  - Erythema [Recovered/Resolved]
  - Pain [Recovered/Resolved]
  - No adverse event [Recovered/Resolved]
  - Prescribed overdose [Recovered/Resolved]
  - No adverse event [Recovered/Resolved]
  - Prescribed overdose [Recovered/Resolved]
  - No adverse event [Recovered/Resolved]
  - Prescribed overdose [Recovered/Resolved]
  - No adverse event [Recovered/Resolved]
  - Prescribed overdose [Unknown]
  - No adverse event [Unknown]
  - Prescribed overdose [Recovered/Resolved]
  - No adverse event [Unknown]
  - Prescribed overdose [Unknown]
  - No adverse event [Unknown]
  - Prescribed overdose [Unknown]
  - No adverse event [Recovered/Resolved]
  - Prescribed overdose [Recovered/Resolved]
  - No adverse event [Recovered/Resolved]
  - Prescribed overdose [Recovered/Resolved]

NARRATIVE: CASE EVENT DATE: 20220801
